FAERS Safety Report 6524674-4 (Version None)
Quarter: 2010Q1

REPORT INFORMATION
  Report Type: 
  Country: None (occurrence: None)
  Receive Date: 20100104
  Receipt Date: 20091218
  Transmission Date: 20100710
  Serious: No
  Sender: FDA-Public Use
  Company Number: US-B.I. PHARMACEUTICALS,INC./RIDGEFIELD-2009-BP-14633BP

PATIENT
  Sex: Male

DRUGS (1)
  1. SPIRIVA [Suspect]
     Indication: CHRONIC OBSTRUCTIVE PULMONARY DISEASE
     Dosage: 18 MCG
     Route: 055
     Dates: start: 20091101, end: 20091217

REACTIONS (7)
  - ARTHRALGIA [None]
  - DRY EYE [None]
  - EYE HAEMORRHAGE [None]
  - EYE PAIN [None]
  - HYPOAESTHESIA EYE [None]
  - PAIN IN EXTREMITY [None]
  - VISION BLURRED [None]
